FAERS Safety Report 7936883-8 (Version None)
Quarter: 2011Q4

REPORT INFORMATION
  Report Type: 
  Country: None (occurrence: None)
  Receive Date: 20111123
  Receipt Date: 20111123
  Transmission Date: 20120403
  Serious: Yes (Life-Threatening, Other)
  Sender: FDA-Public Use
  Company Number: None

PATIENT
  Age: 44 Year
  Sex: Female
  Weight: 80.285 kg

DRUGS (1)
  1. BOTOX COSMETIC [Suspect]
     Indication: SKIN WRINKLING
     Dosage: 20CC
     Dates: start: 20110901, end: 20110901

REACTIONS (10)
  - PALPITATIONS [None]
  - FATIGUE [None]
  - CHEST DISCOMFORT [None]
  - ASPHYXIA [None]
  - DYSPHAGIA [None]
  - STRESS [None]
  - HEADACHE [None]
  - IMPAIRED WORK ABILITY [None]
  - CARDIAC FLUTTER [None]
  - DYSPNOEA [None]
